FAERS Safety Report 7146066-X (Version None)
Quarter: 2010Q4

REPORT INFORMATION
  Report Type: 
  Country: None (occurrence: None)
  Receive Date: 20101123
  Receipt Date: 20101108
  Transmission Date: 20110411
  Serious: Yes (Other)
  Sender: FDA-Public Use
  Company Number: CIO10009771

PATIENT
  Age: 64 Year
  Sex: Male

DRUGS (2)
  1. METAMUCIL-2 [Suspect]
     Dosage: 2 WAFER, 1 /DAY, ORAL
     Route: 048
     Dates: start: 20100707, end: 20100707
  2. THICK-IT POWDER [Concomitant]

REACTIONS (5)
  - CHOKING [None]
  - DYSPHAGIA [None]
  - FOREIGN BODY [None]
  - OESOPHAGEAL OBSTRUCTION [None]
  - REGURGITATION [None]
